FAERS Safety Report 4303698-1 (Version None)
Quarter: 2004Q1

REPORT INFORMATION
  Report Type: 
  Country: None (occurrence: None)
  Receive Date: 20040223
  Receipt Date: 20040216
  Transmission Date: 20041129
  Serious: Yes (Life-Threatening)
  Sender: FDA-Public Use
  Company Number: 200410190BVD

PATIENT

DRUGS (1)
  1. AVELOX [Suspect]

REACTIONS (1)
  - SHOCK [None]
